FAERS Safety Report 6139882-4 (Version None)
Quarter: 2009Q1

REPORT INFORMATION
  Report Type: 
  Country: None (occurrence: None)
  Receive Date: 20090324
  Receipt Date: 20090320
  Transmission Date: 20090719
  Serious: Yes (Hospitalization)
  Sender: FDA-Public Use
  Company Number: ADE2009-0496

PATIENT
  Age: 51 Year
  Sex: Female
  Weight: 112 kg

DRUGS (9)
  1. CITALOPRAM HYDROBROMIDE [Suspect]
     Indication: DEPRESSION
     Dosage: 10.20 MG QD ORAL
     Route: 048
     Dates: start: 20090213, end: 20090218
  2. ADCORTYL [Concomitant]
  3. BECLOMETHASONE DIPROPIONATE [Concomitant]
  4. BENDROFLUMETHIAZIDE [Concomitant]
  5. DICLOFENAC [Concomitant]
  6. IRBESARTAN [Concomitant]
  7. LIDOCAINE [Concomitant]
  8. OMEPRAZOLE [Concomitant]
  9. SALBUTAMOL [Concomitant]

REACTIONS (4)
  - HEADACHE [None]
  - PAIN [None]
  - VISION BLURRED [None]
  - VOMITING [None]
